FAERS Safety Report 15698275 (Version 1)
Quarter: 2018Q4

REPORT INFORMATION
  Report Type: Spontaneous
  Country: US (occurrence: US)
  Receive Date: 20181206
  Receipt Date: 20181206
  Transmission Date: 20190205
  Serious: Yes (Other)
  Sender: FDA-Public Use
  Company Number: None

PATIENT
  Age: 67 Year
  Sex: Female
  Weight: 76.5 kg

DRUGS (12)
  1. IBRANCE [Suspect]
     Active Substance: PALBOCICLIB
     Indication: BREAST CANCER
     Dosage: ?          OTHER FREQUENCY:DAILY X21D, 7D OFF;?
     Route: 048
     Dates: start: 20181030
  2. IRON COMPLEX [Concomitant]
  3. MARIJUANA [Concomitant]
     Active Substance: CANNABIS SATIVA SUBSP. INDICA TOP
  4. CALCIUM FOR WOMEN [Concomitant]
  5. LETROZOLE. [Suspect]
     Active Substance: LETROZOLE
     Indication: BREAST CANCER
     Route: 048
     Dates: start: 20181030
  6. TYLENOL 8HR [Concomitant]
     Active Substance: ACETAMINOPHEN
  7. HCTZ [Concomitant]
     Active Substance: HYDROCHLOROTHIAZIDE
  8. AMIODARONE [Concomitant]
     Active Substance: AMIODARONE
  9. CBD OIL [Concomitant]
     Active Substance: CANNABIDIOL\HERBALS
  10. WOMENS MULTIVITAMIN [Concomitant]
  11. ZINC GLUCONATE [Concomitant]
     Active Substance: ZINC GLUCONATE
  12. NAPROXEN. [Concomitant]
     Active Substance: NAPROXEN

REACTIONS (1)
  - Neutropenia [None]

NARRATIVE: CASE EVENT DATE: 20181206
